FAERS Safety Report 14662841 (Version 1)
Quarter: 2018Q1

REPORT INFORMATION
  Report Type: Spontaneous
  Country: RU (occurrence: RU)
  Receive Date: 20180321
  Receipt Date: 20180321
  Transmission Date: 20180509
  Serious: No
  Sender: FDA-Public Use
  Company Number: RU-LUPIN PHARMACEUTICALS INC.-2017-06848

PATIENT
  Age: 11 Month
  Sex: Male

DRUGS (3)
  1. IXIME [Suspect]
     Active Substance: CEFIXIME
     Indication: PHARYNGITIS
     Dosage: 5 ML, QD
     Route: 065
     Dates: start: 20170907, end: 20170912
  2. MIRAMISTIN [Suspect]
     Active Substance: MIRAMISTIN
     Indication: PHARYNGITIS
     Dosage: UNK
     Route: 065
     Dates: start: 20170907, end: 20170914
  3. NASOL BABY [Suspect]
     Active Substance: PHENYLEPHRINE HYDROCHLORIDE
     Indication: PHARYNGITIS
     Dosage: UNK
     Route: 065
     Dates: start: 20170907, end: 20170912

REACTIONS (2)
  - Rash [Recovered/Resolved]
  - Dermatitis allergic [None]

NARRATIVE: CASE EVENT DATE: 20170909
